FAERS Safety Report 14355757 (Version 2)
Quarter: 2018Q1

REPORT INFORMATION
  Report Type: Spontaneous
  Country: US (occurrence: US)
  Receive Date: 20180105
  Receipt Date: 20180208
  Transmission Date: 20180509
  Serious: Yes (Other)
  Sender: FDA-Public Use
  Company Number: US-ASTRAZENECA-2018SE00426

PATIENT
  Age: 916 Month
  Sex: Female
  Weight: 80.7 kg

DRUGS (7)
  1. BRILINTA [Suspect]
     Active Substance: TICAGRELOR
     Indication: ATRIOVENTRICULAR BLOCK
     Route: 048
     Dates: start: 20171213
  2. ASA [Concomitant]
     Active Substance: ASPIRIN
  3. METOPROLOL. [Suspect]
     Active Substance: METOPROLOL
     Route: 065
  4. LOSARTAN. [Concomitant]
     Active Substance: LOSARTAN
  5. LIPITOR [Concomitant]
     Active Substance: ATORVASTATIN CALCIUM
  6. BRILINTA [Suspect]
     Active Substance: TICAGRELOR
     Indication: STENT PLACEMENT
     Route: 048
     Dates: start: 20171213
  7. AMLODIPINE [Concomitant]
     Active Substance: AMLODIPINE BESYLATE

REACTIONS (11)
  - Dyspnoea [Unknown]
  - Emotional disorder [Unknown]
  - Feeling abnormal [Unknown]
  - Dizziness [Unknown]
  - Disturbance in attention [Unknown]
  - Gait disturbance [Unknown]
  - Hypotension [Unknown]
  - Palpitations [Unknown]
  - Weight increased [Unknown]
  - Hypertension [Unknown]
  - Fatigue [Unknown]

NARRATIVE: CASE EVENT DATE: 201801
